FAERS Safety Report 7830276-X (Version None)
Quarter: 2011Q4

REPORT INFORMATION
  Report Type: 
  Country: None (occurrence: None)
  Receive Date: 20111021
  Receipt Date: 20111010
  Transmission Date: 20120403
  Serious: Yes (Other)
  Sender: FDA-Public Use
  Company Number: GB-RANBAXY-2011R1-48954

PATIENT
  Age: 12 Year
  Sex: Female

DRUGS (1)
  1. FLUOXETINE [Suspect]
     Indication: MYASTHENIC SYNDROME
     Dosage: 60 MG DAILY
     Route: 065

REACTIONS (2)
  - RESPIRATORY FAILURE [None]
  - OFF LABEL USE [None]
